FAERS Safety Report 13523149 (Version 1)
Quarter: 2017Q2

REPORT INFORMATION
  Report Type: Spontaneous
  Country: GB (occurrence: GB)
  Receive Date: 20170508
  Receipt Date: 20170508
  Transmission Date: 20170830
  Serious: Yes (Life-Threatening)
  Sender: FDA-Public Use
  Company Number: GB-PFIZER INC-2017197329

PATIENT
  Age: 25 Day
  Sex: Male

DRUGS (1)
  1. PANCURONIUM BROMIDE. [Suspect]
     Active Substance: PANCURONIUM BROMIDE
     Dosage: 540 UG, UNK

REACTIONS (2)
  - Overdose [Recovered/Resolved]
  - Brain stem syndrome [Recovered/Resolved]
